FAERS Safety Report 15061788 (Version 5)
Quarter: 2018Q3

REPORT INFORMATION
  Report Type: Report from Study
  Country: JP (occurrence: JP)
  Receive Date: 20180625
  Receipt Date: 20180926
  Transmission Date: 20181010
  Serious: Yes (Hospitalization)
  Sender: FDA-Public Use
  Company Number: JP-ROCHE-2125486

PATIENT
  Age: 48 Year
  Sex: Female
  Weight: 45 kg

DRUGS (138)
  1. OXYCONTIN [Concomitant]
     Active Substance: OXYCODONE HYDROCHLORIDE
     Indication: TUMOUR PAIN
     Route: 065
     Dates: start: 20180223, end: 20180424
  2. SYMPROIC [Concomitant]
     Active Substance: NALDEMEDINE
     Route: 065
     Dates: start: 20180705
  3. FLUTICASONE FUROATE [Concomitant]
     Active Substance: FLUTICASONE FUROATE
     Indication: SEASONAL ALLERGY
     Route: 061
     Dates: start: 20180328, end: 20180422
  4. ACELIO [Concomitant]
     Active Substance: ACETAMINOPHEN
     Route: 065
     Dates: start: 20180907, end: 20180912
  5. SUPRANE [Concomitant]
     Active Substance: DESFLURANE
     Indication: GENERAL ANAESTHESIA
     Route: 065
     Dates: start: 20180425, end: 20180425
  6. PHYSIO140 [Concomitant]
     Route: 065
     Dates: start: 20180907, end: 20180912
  7. VOLUVEN (JAPAN) [Concomitant]
     Route: 042
     Dates: start: 20180425, end: 20180425
  8. KETALAR [Concomitant]
     Active Substance: KETAMINE HYDROCHLORIDE
     Indication: PAIN
     Route: 042
     Dates: start: 20180426, end: 20180502
  9. GASCON [Concomitant]
     Active Substance: DIMETHICONE
     Route: 065
     Dates: start: 20180507, end: 20180516
  10. EMEND [Concomitant]
     Active Substance: APREPITANT
     Route: 065
     Dates: start: 20180522, end: 20180523
  11. EMEND [Concomitant]
     Active Substance: APREPITANT
     Route: 065
     Dates: start: 20180612, end: 20180613
  12. SOLACET F [Concomitant]
     Route: 065
     Dates: start: 20180523, end: 20180524
  13. RINDERON V [Concomitant]
     Active Substance: BETAMETHASONE VALERATE
     Indication: INFUSION SITE EXTRAVASATION
     Route: 058
     Dates: start: 20180613, end: 20180613
  14. MAGMITT [Concomitant]
     Active Substance: MAGNESIUM OXIDE
     Route: 065
     Dates: start: 20180507, end: 20180516
  15. TALION (JAPAN) [Concomitant]
     Active Substance: BEPOTASTINE
     Indication: SEASONAL ALLERGY
     Route: 065
     Dates: start: 20180219
  16. OXYCONTIN [Concomitant]
     Active Substance: OXYCODONE HYDROCHLORIDE
     Indication: PROCEDURAL PAIN
     Route: 065
     Dates: start: 20180507, end: 20180516
  17. ZYPREXA [Concomitant]
     Active Substance: OLANZAPINE
     Route: 065
     Dates: start: 20180521, end: 20180604
  18. PROPOFOL. [Concomitant]
     Active Substance: PROPOFOL
     Route: 065
     Dates: start: 20180907, end: 20180907
  19. ESLAX [Concomitant]
     Active Substance: ROCURONIUM BROMIDE
     Route: 065
     Dates: start: 20180907, end: 20180907
  20. XYLOCAINE [Concomitant]
     Active Substance: LIDOCAINE HYDROCHLORIDE
     Indication: PAIN
     Route: 065
     Dates: start: 20180612, end: 20180612
  21. SUPRANE [Concomitant]
     Active Substance: DESFLURANE
     Route: 065
     Dates: start: 20180907
  22. DECADRON (DEXAMETHASONE SODIUM PHOSPHATE) [Concomitant]
     Active Substance: DEXAMETHASONE SODIUM PHOSPHATE
     Route: 042
     Dates: start: 20180612, end: 20180612
  23. NEOSYNESIN KOWA [Concomitant]
     Indication: GENERAL ANAESTHESIA
     Route: 065
     Dates: start: 20180425, end: 20180425
  24. BICANATE [Concomitant]
     Route: 065
     Dates: start: 20180907, end: 20180907
  25. PHYSIO140 [Concomitant]
     Route: 065
     Dates: start: 20180523, end: 20180523
  26. SOLACET D [Concomitant]
     Route: 065
     Dates: start: 20180425, end: 20180504
  27. OXIFAST [Concomitant]
     Active Substance: OXYCODONE
     Indication: PROCEDURAL PAIN
     Route: 065
     Dates: start: 20180516, end: 20180523
  28. GASCON [Concomitant]
     Active Substance: DIMETHICONE
     Indication: ABDOMINAL DISTENSION
     Route: 065
     Dates: start: 20180427, end: 20180516
  29. ALOXI [Concomitant]
     Active Substance: PALONOSETRON HYDROCHLORIDE
     Route: 065
     Dates: start: 20180612, end: 20180612
  30. RESTAMIN KOWA [Concomitant]
     Route: 065
     Dates: start: 20180522, end: 20180522
  31. PACLITAXEL. [Suspect]
     Active Substance: PACLITAXEL
     Indication: OVARIAN CANCER
     Dosage: DATE OF MOST RECENT DOSE 259 MG OF PACLITAXEL PRIOR TO SAE (ABDOMINAL PAIN) ONSET 03/APR/2018?ON 22/
     Route: 042
     Dates: start: 20180220
  32. LYRICA [Concomitant]
     Active Substance: PREGABALIN
     Indication: PERIPHERAL SENSORY NEUROPATHY
     Route: 065
     Dates: start: 20180316, end: 20180424
  33. FENTANYL. [Concomitant]
     Active Substance: FENTANYL
     Route: 065
     Dates: start: 20180425, end: 20180426
  34. REMIFENTANIL [Concomitant]
     Active Substance: REMIFENTANIL
     Route: 042
     Dates: start: 20180425, end: 20180425
  35. REMIFENTANIL [Concomitant]
     Active Substance: REMIFENTANIL
     Route: 042
     Dates: start: 20180907, end: 20180907
  36. DROLEPTAN [Concomitant]
     Active Substance: DROPERIDOL
     Indication: GENERAL ANAESTHESIA
     Route: 065
     Dates: start: 20180425, end: 20180425
  37. POPSCAINE [Concomitant]
     Active Substance: LEVOBUPIVACAINE HYDROCHLORIDE
     Route: 065
     Dates: start: 20180425, end: 20180427
  38. OXYGEN. [Concomitant]
     Active Substance: OXYGEN
     Indication: GENERAL ANAESTHESIA
     Dosage: LIQUEFIED OXYGEN
     Route: 065
     Dates: start: 20180425, end: 20180430
  39. SOLACET D [Concomitant]
     Route: 065
     Dates: start: 20180506, end: 20180507
  40. SOLACET D [Concomitant]
     Route: 065
     Dates: start: 20180522, end: 20180522
  41. FESIN (JAPAN) [Concomitant]
     Active Substance: IRON SUCROSE
     Indication: PROCEDURAL HAEMORRHAGE
     Route: 065
     Dates: start: 20180426, end: 20180507
  42. GASCON [Concomitant]
     Active Substance: DIMETHICONE
     Route: 065
     Dates: start: 20180517, end: 20180619
  43. CLOSTRIDIUM BUTYRICUM [Concomitant]
     Active Substance: CLOSTRIDIUM BUTYRICUM SPORES STRAIN M-55
     Indication: DIARRHOEA
     Route: 065
     Dates: start: 20180614, end: 20180619
  44. DERMOVATE [Concomitant]
     Active Substance: CLOBETASOL
     Indication: INFUSION SITE EXTRAVASATION
     Dosage: 0.05 OTHER
     Route: 061
     Dates: start: 20180612, end: 20180618
  45. SERENACE [Concomitant]
     Active Substance: HALOPERIDOL
     Route: 065
     Dates: start: 20180621, end: 20180628
  46. OXINORM (JAPAN) [Concomitant]
     Active Substance: OXYCODONE HYDROCHLORIDE
     Indication: TUMOUR PAIN
     Route: 065
     Dates: start: 20180223, end: 20180424
  47. OXINORM (JAPAN) [Concomitant]
     Active Substance: OXYCODONE HYDROCHLORIDE
     Indication: PROCEDURAL PAIN
     Route: 065
     Dates: start: 20180523, end: 20180619
  48. LYRICA [Concomitant]
     Active Substance: PREGABALIN
     Route: 065
     Dates: start: 20180509, end: 20180516
  49. LYRICA [Concomitant]
     Active Substance: PREGABALIN
     Route: 065
     Dates: start: 20180517, end: 20180619
  50. LYRICA [Concomitant]
     Active Substance: PREGABALIN
     Route: 065
     Dates: start: 20180717
  51. HYALEIN MINI [Concomitant]
     Active Substance: HYALURONATE SODIUM
     Route: 065
     Dates: start: 20180422
  52. PROPOFOL. [Concomitant]
     Active Substance: PROPOFOL
     Route: 065
     Dates: start: 20180425, end: 20180425
  53. BICANATE [Concomitant]
     Route: 065
     Dates: start: 20180425, end: 20180425
  54. BRIDION [Concomitant]
     Active Substance: SUGAMMADEX
     Indication: GENERAL ANAESTHESIA
     Route: 042
     Dates: start: 20180425, end: 20180425
  55. VOLUVEN (JAPAN) [Concomitant]
     Route: 042
     Dates: start: 20180907, end: 20180907
  56. EPHEDRINE HYDROCHLORIDE [Concomitant]
     Active Substance: EPHEDRINE HYDROCHLORIDE
     Indication: GENERAL ANAESTHESIA
     Route: 065
     Dates: start: 20180425, end: 20180425
  57. DAIKENCHUTO [Concomitant]
     Active Substance: HERBALS
     Route: 065
     Dates: start: 20180517, end: 20180619
  58. DAIKENCHUTO [Concomitant]
     Active Substance: HERBALS
     Route: 065
     Dates: start: 20180704
  59. ANTEBATE [Concomitant]
     Active Substance: BETAMETHASONE DIPROPIONATE
     Indication: RASH MACULO-PAPULAR
     Dosage: ANTEBATE LOTION 0.05%
     Route: 061
     Dates: start: 20180413, end: 20180422
  60. BEPOTASTINE BESILATE [Concomitant]
     Active Substance: BEPOTASTINE BESILATE
     Route: 065
     Dates: start: 20180507, end: 20180516
  61. CEFMETAZOLE SODIUM [Concomitant]
     Active Substance: CEFMETAZOLE SODIUM
     Route: 042
     Dates: start: 20180620, end: 20180620
  62. MAXIPIME [Concomitant]
     Active Substance: CEFEPIME HYDROCHLORIDE
     Route: 065
     Dates: start: 20180624, end: 20180630
  63. NORADRENALINE [Concomitant]
     Active Substance: NOREPINEPHRINE
     Route: 065
     Dates: start: 20180907, end: 20180907
  64. MAGMITT [Concomitant]
     Active Substance: MAGNESIUM OXIDE
     Route: 065
     Dates: start: 201802, end: 20180422
  65. MAGMITT [Concomitant]
     Active Substance: MAGNESIUM OXIDE
     Route: 065
     Dates: start: 20180704
  66. OXYCONTIN [Concomitant]
     Active Substance: OXYCODONE HYDROCHLORIDE
     Route: 065
     Dates: start: 20180711
  67. HIRUDOID (JAPAN) [Concomitant]
     Indication: DRY SKIN
     Route: 065
     Dates: start: 20180312
  68. FENTANYL. [Concomitant]
     Active Substance: FENTANYL
     Route: 065
     Dates: start: 20180907, end: 20180907
  69. BRIDION [Concomitant]
     Active Substance: SUGAMMADEX
     Route: 042
     Dates: start: 20180907, end: 20180907
  70. FLUMARIN (FLOMOXEF SODIUM) [Concomitant]
     Indication: INFECTION PROPHYLAXIS
     Route: 065
     Dates: start: 20180425, end: 20180426
  71. POPSCAINE [Concomitant]
     Active Substance: LEVOBUPIVACAINE HYDROCHLORIDE
     Route: 065
     Dates: start: 20180907, end: 20180907
  72. KENEI G [Concomitant]
     Active Substance: GLYCERIN
     Dosage: KENEI G ENEMA 50%
     Route: 065
     Dates: start: 20180425, end: 20180425
  73. PRIMPERAN [Concomitant]
     Active Substance: METOCLOPRAMIDE HYDROCHLORIDE
     Route: 065
     Dates: start: 20180614, end: 20180614
  74. ALLEGRA [Concomitant]
     Active Substance: FEXOFENADINE HYDROCHLORIDE
     Indication: RASH MACULO-PAPULAR
     Route: 065
     Dates: start: 20180413, end: 20180415
  75. METHADERM [Concomitant]
     Indication: RASH MACULO-PAPULAR
     Dosage: METHADERM CREAM 0.1%
     Route: 061
     Dates: start: 20180413, end: 20180422
  76. BEPOTASTINE BESILATE [Concomitant]
     Active Substance: BEPOTASTINE BESILATE
     Indication: SEASONAL ALLERGY
     Route: 065
     Dates: start: 20180416, end: 20180424
  77. ROSUVASTATIN CALCIUM. [Concomitant]
     Active Substance: ROSUVASTATIN CALCIUM
     Route: 065
     Dates: start: 20180517, end: 20180619
  78. GASTER [Concomitant]
     Active Substance: FAMOTIDINE
     Route: 065
     Dates: start: 20180522, end: 20180522
  79. GRAN [Concomitant]
     Active Substance: FILGRASTIM
     Route: 065
     Dates: start: 20180623, end: 20180625
  80. CALONAL [Concomitant]
     Active Substance: ACETAMINOPHEN
     Indication: PAIN
     Route: 065
     Dates: start: 20180507, end: 20180516
  81. CALONAL [Concomitant]
     Active Substance: ACETAMINOPHEN
     Indication: PROCEDURAL PAIN
     Route: 065
     Dates: start: 20180517, end: 20180604
  82. SOLU?CORTEF [Concomitant]
     Active Substance: HYDROCORTISONE SODIUM SUCCINATE
     Indication: INFUSION SITE EXTRAVASATION
     Route: 058
     Dates: start: 20180612, end: 20180612
  83. LOXOPROFEN NA [Concomitant]
     Active Substance: LOXOPROFEN SODIUM
     Indication: PAIN
     Route: 065
     Dates: start: 20180623, end: 20180623
  84. BEVACIZUMAB. [Suspect]
     Active Substance: BEVACIZUMAB
     Indication: OVARIAN CANCER
     Dosage: DATE OF MOST RECENT DOSE 742 MG OF BEVACEZUMAB PRIOR TO SAE (ABDOMINAL PAIN) ONSET 13/MAR/2018?DATE
     Route: 042
     Dates: start: 20180220
  85. CARBOPLATIN. [Suspect]
     Active Substance: CARBOPLATIN
     Indication: OVARIAN CANCER
     Dosage: AREA UNDER THE CURVE (AUC) OF 6 MILLIGRAMS PER MILLILITER*MINUTE (MG/ML*MIN) ON DAY 1 OF EACH 21?DAY
     Route: 042
     Dates: start: 20180220
  86. OXINORM (JAPAN) [Concomitant]
     Active Substance: OXYCODONE HYDROCHLORIDE
     Indication: ARTHRALGIA
     Route: 065
     Dates: start: 20180507, end: 20180516
  87. SYMPROIC [Concomitant]
     Active Substance: NALDEMEDINE
     Route: 065
     Dates: start: 20180523, end: 20180619
  88. NORITREN [Concomitant]
     Active Substance: NORTRIPTYLINE HYDROCHLORIDE
     Route: 065
     Dates: start: 20180711
  89. ZYPREXA [Concomitant]
     Active Substance: OLANZAPINE
     Indication: NAUSEA
     Route: 065
     Dates: start: 20180405, end: 20180424
  90. ACELIO [Concomitant]
     Active Substance: ACETAMINOPHEN
     Indication: PAIN
     Route: 042
     Dates: start: 20180425, end: 20180504
  91. NEOSYNESIN KOWA [Concomitant]
     Route: 065
     Dates: start: 20180907, end: 20180907
  92. PHYSIO140 [Concomitant]
     Route: 065
     Dates: start: 20180425, end: 20180428
  93. AIR. [Concomitant]
     Active Substance: AIR
     Indication: GENERAL ANAESTHESIA
     Route: 065
     Dates: start: 20180425, end: 20180425
  94. OXYGEN. [Concomitant]
     Active Substance: OXYGEN
     Route: 065
     Dates: start: 20180907, end: 20180907
  95. SOLACET D [Concomitant]
     Route: 065
     Dates: start: 20180612, end: 20180612
  96. ROPION [Concomitant]
     Active Substance: FLURBIPROFEN AXETIL
     Indication: PAIN
     Route: 042
     Dates: start: 20180426, end: 20180426
  97. OXIFAST [Concomitant]
     Active Substance: OXYCODONE
     Indication: PAIN
     Route: 065
     Dates: start: 20180426, end: 20180506
  98. PRIMPERAN [Concomitant]
     Active Substance: METOCLOPRAMIDE HYDROCHLORIDE
     Route: 065
     Dates: start: 20180619, end: 20180620
  99. DAIKENCHUTO [Concomitant]
     Active Substance: HERBALS
     Route: 065
     Dates: start: 20180507, end: 20180516
  100. BEPOTASTINE BESILATE [Concomitant]
     Active Substance: BEPOTASTINE BESILATE
     Route: 065
     Dates: start: 20180711
  101. ROSUVASTATIN CALCIUM. [Concomitant]
     Active Substance: ROSUVASTATIN CALCIUM
     Indication: HYPERCHOLESTEROLAEMIA
     Route: 065
     Dates: start: 20180507, end: 20180516
  102. ALOXI [Concomitant]
     Active Substance: PALONOSETRON HYDROCHLORIDE
     Route: 042
     Dates: start: 20180522, end: 20180522
  103. SOLACET F [Concomitant]
     Route: 065
     Dates: start: 20180522, end: 20180522
  104. RESTAMIN KOWA [Concomitant]
     Indication: DRY SKIN
     Route: 065
     Dates: start: 201802, end: 20180422
  105. RESTAMIN KOWA [Concomitant]
     Route: 065
     Dates: start: 20180612, end: 20180612
  106. GRAN [Concomitant]
     Active Substance: FILGRASTIM
     Indication: NEUTROPHIL COUNT DECREASED
     Dosage: SYRINGE
     Route: 065
     Dates: start: 20180416, end: 20180418
  107. OXYCONTIN [Concomitant]
     Active Substance: OXYCODONE HYDROCHLORIDE
     Route: 065
     Dates: start: 20180516, end: 20180523
  108. OXYCONTIN [Concomitant]
     Active Substance: OXYCODONE HYDROCHLORIDE
     Route: 065
     Dates: start: 20180523, end: 20180619
  109. SYMPROIC [Concomitant]
     Active Substance: NALDEMEDINE
     Indication: CONSTIPATION
     Route: 065
     Dates: start: 20180223, end: 20180424
  110. HIRUDOID (JAPAN) [Concomitant]
     Route: 065
     Dates: start: 20180312
  111. NORITREN [Concomitant]
     Active Substance: NORTRIPTYLINE HYDROCHLORIDE
     Indication: PERIPHERAL SENSORY NEUROPATHY
     Route: 065
     Dates: start: 20180404, end: 20180424
  112. DECADRON (DEXAMETHASONE SODIUM PHOSPHATE) [Concomitant]
     Active Substance: DEXAMETHASONE SODIUM PHOSPHATE
     Indication: PROPHYLAXIS OF NAUSEA AND VOMITING
     Route: 042
     Dates: start: 20180425, end: 20180425
  113. DECADRON (DEXAMETHASONE SODIUM PHOSPHATE) [Concomitant]
     Active Substance: DEXAMETHASONE SODIUM PHOSPHATE
     Route: 042
     Dates: start: 20180522, end: 20180522
  114. SENNOSIDE [Concomitant]
     Active Substance: SENNOSIDES
     Route: 065
     Dates: start: 20180423, end: 20180423
  115. BEPOTASTINE BESILATE [Concomitant]
     Active Substance: BEPOTASTINE BESILATE
     Route: 065
     Dates: start: 20180517, end: 20180619
  116. ROSUVASTATIN CALCIUM. [Concomitant]
     Active Substance: ROSUVASTATIN CALCIUM
     Route: 065
     Dates: start: 20180711
  117. DOMPERIDONE [Concomitant]
     Active Substance: DOMPERIDONE
     Indication: NAUSEA
     Route: 065
     Dates: start: 20180614, end: 20180619
  118. NICARDIPINE HCL [Concomitant]
     Active Substance: NICARDIPINE HYDROCHLORIDE
     Route: 065
     Dates: start: 20180907, end: 20180907
  119. BLINDED ATEZOLIZUMAB [Suspect]
     Active Substance: ATEZOLIZUMAB
     Indication: OVARIAN CANCER
     Dosage: DATE OF MOST RECENT DOSE OF ATEZOLIZUMAB/PLACEBO PRIOR TO SAE (ABDOMINAL PAIN) ONSET 03/APR/2018?ON
     Route: 042
     Dates: start: 20180220
  120. CRESTOR [Concomitant]
     Active Substance: ROSUVASTATIN CALCIUM
     Indication: HYPERCHOLESTEROLAEMIA
     Route: 065
     Dates: start: 201709, end: 20180425
  121. MAGMITT [Concomitant]
     Active Substance: MAGNESIUM OXIDE
     Route: 065
     Dates: start: 20180517, end: 20180619
  122. SYMPROIC [Concomitant]
     Active Substance: NALDEMEDINE
     Route: 065
     Dates: start: 20180507, end: 20180516
  123. ESLAX [Concomitant]
     Active Substance: ROCURONIUM BROMIDE
     Route: 065
     Dates: start: 20180425, end: 20180425
  124. XYLOCAINE [Concomitant]
     Active Substance: LIDOCAINE HYDROCHLORIDE
     Indication: GENERAL ANAESTHESIA
     Route: 065
     Dates: start: 20180425, end: 20180426
  125. PHYSIO140 [Concomitant]
     Route: 065
     Dates: start: 20180613, end: 20180613
  126. OXIFAST [Concomitant]
     Active Substance: OXYCODONE
     Route: 065
     Dates: start: 20180619
  127. CLEXANE [Concomitant]
     Active Substance: ENOXAPARIN SODIUM
     Indication: THROMBOSIS PROPHYLAXIS
     Route: 065
     Dates: start: 20180426, end: 20180501
  128. PRIMPERAN [Concomitant]
     Active Substance: METOCLOPRAMIDE HYDROCHLORIDE
     Indication: NAUSEA
     Route: 065
     Dates: start: 20180427, end: 20180427
  129. DAIKENCHUTO [Concomitant]
     Active Substance: HERBALS
     Indication: ABDOMINAL DISTENSION
     Route: 065
     Dates: start: 20180427, end: 20180516
  130. GASTER [Concomitant]
     Active Substance: FAMOTIDINE
     Route: 065
     Dates: start: 20180612, end: 20180612
  131. SOLACET F [Concomitant]
     Route: 065
     Dates: start: 20180516, end: 20180517
  132. SOLACET F [Concomitant]
     Route: 065
     Dates: start: 20180611, end: 20180611
  133. SOLACET F [Concomitant]
     Route: 065
     Dates: start: 20180613, end: 20180614
  134. ERYTHROCYTES [Concomitant]
     Active Substance: HUMAN RED BLOOD CELL
     Dosage: IRRADIATED ERYTHROCYTE
     Route: 065
     Dates: start: 20180425, end: 20180425
  135. ANTEBATE [Concomitant]
     Active Substance: BETAMETHASONE DIPROPIONATE
     Indication: DRY SKIN
     Dosage: 0.05 OTHER
     Route: 061
     Dates: start: 20180613
  136. LACTEC [Concomitant]
     Active Substance: CALCIUM CHLORIDE ANHYDROUS\POTASSIUM CHLORIDE\SODIUM CHLORIDE\SODIUM LACTATE
     Route: 065
     Dates: start: 20180619
  137. ROHYPNOL [Concomitant]
     Active Substance: FLUNITRAZEPAM
     Route: 065
     Dates: start: 20180621, end: 20180625
  138. DORMICUM (INJ) [Concomitant]
     Active Substance: MIDAZOLAM HYDROCHLORIDE
     Route: 065
     Dates: start: 20180907, end: 20180907

REACTIONS (3)
  - Ileus [Recovered/Resolved]
  - Enterocolitis [Recovered/Resolved]
  - Abdominal pain [Recovered/Resolved]

NARRATIVE: CASE EVENT DATE: 20180515
